FAERS Safety Report 23445635 (Version 1)
Quarter: 2024Q1

REPORT INFORMATION
  Report Type: Spontaneous
  Country: CA (occurrence: CA)
  Receive Date: 20240126
  Receipt Date: 20240126
  Transmission Date: 20240410
  Serious: Yes (Other)
  Sender: FDA-Public Use
  Company Number: CA-CELLTRION INC.-2024CA001772

PATIENT

DRUGS (25)
  1. INFLECTRA [Suspect]
     Active Substance: INFLIXIMAB-DYYB
     Indication: Colitis ulcerative
     Dosage: 5 MG/KG, WEEK 0 DOSE
     Route: 042
     Dates: start: 20180220, end: 20180220
  2. INFLECTRA [Suspect]
     Active Substance: INFLIXIMAB-DYYB
     Dosage: 5 MG/KG, WEEK 2 DOSE
     Route: 042
     Dates: start: 20180305, end: 20180305
  3. INFLECTRA [Suspect]
     Active Substance: INFLIXIMAB-DYYB
     Dosage: 5 MG/KG, WEEK 6 DOSE
     Route: 042
     Dates: start: 20180403, end: 20180403
  4. INFLECTRA [Suspect]
     Active Substance: INFLIXIMAB-DYYB
     Dosage: 5 MG/KG, EVERY 8 WEEKS
     Route: 042
     Dates: start: 20180529, end: 20180724
  5. INFLECTRA [Suspect]
     Active Substance: INFLIXIMAB-DYYB
     Dosage: 10 MG/KG, ONE TIME RESCUE DOSE
     Route: 042
     Dates: start: 20180831, end: 20180831
  6. INFLECTRA [Suspect]
     Active Substance: INFLIXIMAB-DYYB
     Dosage: 10 MG/KG, EVERY 6 WEEKS
     Route: 042
     Dates: start: 20181010, end: 20201216
  7. INFLECTRA [Suspect]
     Active Substance: INFLIXIMAB-DYYB
     Dosage: 5 MG/KG, EVERY 8 WEEKS, NO INDUCTION
     Route: 042
     Dates: start: 20210804, end: 20220318
  8. INFLECTRA [Suspect]
     Active Substance: INFLIXIMAB-DYYB
     Dosage: 5 UG/KG, EVERY 4 TO 6 WEEKS
     Route: 042
     Dates: start: 20220426, end: 20220908
  9. INFLECTRA [Suspect]
     Active Substance: INFLIXIMAB-DYYB
     Dosage: 5 MG/KG, EVERY 4 WEEKS
     Route: 042
     Dates: start: 20221003
  10. INFLECTRA [Suspect]
     Active Substance: INFLIXIMAB-DYYB
     Dosage: 5 MG/KG, EVERY 4 WEEKS
     Route: 042
     Dates: start: 20231220
  11. INFLECTRA [Suspect]
     Active Substance: INFLIXIMAB-DYYB
     Dosage: 5 MG/KG, EVERY 4 WEEKS (530MG (5MG/KG), 4 WEEKS)
     Route: 042
     Dates: start: 20240117
  12. ASPIRIN [Concomitant]
     Active Substance: ASPIRIN
     Dosage: 1 DF (ACETYLSALICYLIC ACID 1DFDOSAGE FORM  )
     Route: 065
  13. ALLOPURINOL [Concomitant]
     Active Substance: ALLOPURINOL
     Dosage: 1 DF (ALLOPURINOL 1DFDOSAGE FORM )
     Route: 065
  14. APO-METOPROLOL (TYPE L) [Concomitant]
     Dosage: 1 DF
     Route: 065
  15. ASPIRIN [Concomitant]
     Active Substance: ASPIRIN
     Dosage: 1 DF (ASA 1DFDOSAGE FORM)
     Route: 065
  16. CALCIUM [Concomitant]
     Active Substance: CALCIUM
     Dosage: 500 MG, 2X/DAY
     Route: 065
  17. CITALOPRAM [Concomitant]
     Active Substance: CITALOPRAM HYDROBROMIDE
     Dosage: 1 DF, (CITALOPRAM 1DFDOSAGE FORM)
     Route: 065
  18. JAMP RAMIPRIL [Concomitant]
     Dosage: 1 DF
     Route: 065
  19. LANTUS [Concomitant]
     Active Substance: INSULIN GLARGINE
     Dosage: 1 DF
     Route: 065
  20. MESALAMINE [Concomitant]
     Active Substance: MESALAMINE
     Dosage: 1 DF
     Route: 065
     Dates: start: 2017
  21. MYLAN ESOMEPRAZOLE [Concomitant]
     Dosage: 1 DF, (ESOMEPRAZOLE 1DFDOSAGE FORM)
     Route: 065
  22. NITRO G [Concomitant]
     Dosage: 1 DF, AS NEEDED
     Route: 060
  23. ROSUVASTATIN [Concomitant]
     Active Substance: ROSUVASTATIN
     Dosage: 1 DF (ROSUVASTATIN 1DFDOSAGE FORM)
     Route: 065
  24. AMLODIPINE BESYLATE [Concomitant]
     Active Substance: AMLODIPINE BESYLATE
     Dosage: 1 DF, (AMLODIPINE 1DFDOSAGE FORM )
     Route: 065
  25. TAMSULOSIN [Concomitant]
     Active Substance: TAMSULOSIN
     Dosage: 1 DF (TAMSULOSIN 1DFDOSAGE FORM)
     Route: 065

REACTIONS (1)
  - Transient ischaemic attack [Recovered/Resolved]

NARRATIVE: CASE EVENT DATE: 20240116
